FAERS Safety Report 24135965 (Version 2)
Quarter: 2025Q1

REPORT INFORMATION
  Report Type: Report from Study
  Country: FR (occurrence: FR)
  Receive Date: 20240725
  Receipt Date: 20250214
  Transmission Date: 20250408
  Serious: Yes (Death, Other)
  Sender: AUROBINDO
  Company Number: FR-BIOGARAN-B24001211

PATIENT
  Age: 33 Year
  Sex: Male

DRUGS (2)
  1. SILDENAFIL [Suspect]
     Active Substance: SILDENAFIL
     Indication: Product used for unknown indication
     Route: 065
  2. OXYBATE [Suspect]
     Active Substance: OXYBATE
     Indication: Product used for unknown indication
     Route: 065

REACTIONS (3)
  - Drug abuse [Fatal]
  - Intentional product use issue [Fatal]
  - Intentional product misuse [Fatal]
